FAERS Safety Report 24139069 (Version 3)
Quarter: 2024Q3

REPORT INFORMATION
  Report Type: Report from Study
  Country: US (occurrence: US)
  Receive Date: 20240726
  Receipt Date: 20240909
  Transmission Date: 20241017
  Serious: Yes (Hospitalization)
  Sender: ACADIA PHARMACEUTICALS
  Company Number: US-ACADIA PHARMACEUTICALS INC.-ACA-2024-PIM-003226

PATIENT
  Age: 75 Year
  Sex: Male

DRUGS (21)
  1. NUPLAZID [Suspect]
     Active Substance: PIMAVANSERIN TARTRATE
     Indication: Parkinson^s disease
     Dosage: 34 MILLIGRAM, QD
     Route: 048
     Dates: start: 202206
  2. QUETIAPINE FUMARATE [Concomitant]
     Active Substance: QUETIAPINE FUMARATE
  3. MIRTAZAPINE [Concomitant]
     Active Substance: MIRTAZAPINE
  4. RIVASTIGMINE [Concomitant]
     Active Substance: RIVASTIGMINE
  5. DUOPA [Concomitant]
     Active Substance: CARBIDOPA\LEVODOPA
  6. VIAGRA [Concomitant]
     Active Substance: SILDENAFIL CITRATE
  7. IBUPROFEN [Concomitant]
     Active Substance: IBUPROFEN
  8. COLCRYS [Concomitant]
     Active Substance: COLCHICINE
  9. TAMSULOSIN HYDROCHLORIDE [Concomitant]
     Active Substance: TAMSULOSIN HYDROCHLORIDE
  10. PANTOPRAZOLE SODIUM [Concomitant]
     Active Substance: PANTOPRAZOLE SODIUM
  11. INBRIJA [Concomitant]
     Active Substance: LEVODOPA
  12. VITAMINS NOS [Concomitant]
     Active Substance: VITAMINS
     Dosage: DAILY
  13. CLONAZEPAM [Concomitant]
     Active Substance: CLONAZEPAM
  14. TAMSULOSIN [Concomitant]
     Active Substance: TAMSULOSIN
  15. OXYBUTYNIN [Concomitant]
     Active Substance: OXYBUTYNIN\OXYBUTYNIN CHLORIDE
  16. NITROGLYCERIN [Concomitant]
     Active Substance: NITROGLYCERIN
  17. FIBERCON [Concomitant]
     Active Substance: CALCIUM POLYCARBOPHIL
  18. RASAGILINE MESYLATE [Concomitant]
     Active Substance: RASAGILINE MESYLATE
  19. COLCHICINE [Concomitant]
     Active Substance: COLCHICINE
  20. ROPINIROLE [Concomitant]
     Active Substance: ROPINIROLE
  21. STALEVO [Concomitant]
     Active Substance: CARBIDOPA\ENTACAPONE\LEVODOPA

REACTIONS (4)
  - Upper limb fracture [Not Recovered/Not Resolved]
  - Fall [Unknown]
  - Device dislocation [Unknown]
  - Medical device change [Unknown]

NARRATIVE: CASE EVENT DATE: 20240701
